FAERS Safety Report 4359185-8 (Version None)
Quarter: 2004Q2

REPORT INFORMATION
  Report Type: 
  Country: None (occurrence: None)
  Receive Date: 20040512
  Receipt Date: 20040428
  Transmission Date: 20050107
  Serious: Yes (Hospitalization, Disabling)
  Sender: FDA-Public Use
  Company Number: JP-JNJFOC-20040204745

PATIENT
  Age: 47 Year
  Sex: Female
  Weight: 44.6 kg

DRUGS (4)
  1. REMICADE (INFLIXIMAB, RECOMBINANT) LYOPHILIZED POWDER [Suspect]
     Indication: RHEUMATOID ARTHRITIS
     Dosage: , 1 IN 1 AS NECESSARY, INTRAVENOUS DRIP; 159 MG, 1 IN 1 AS NECESSARY INTRAVENOUS DRIP
     Route: 041
     Dates: start: 20031022, end: 20031022
  2. REMICADE (INFLIXIMAB, RECOMBINANT) LYOPHILIZED POWDER [Suspect]
     Indication: RHEUMATOID ARTHRITIS
     Dosage: , 1 IN 1 AS NECESSARY, INTRAVENOUS DRIP; 159 MG, 1 IN 1 AS NECESSARY INTRAVENOUS DRIP
     Route: 041
     Dates: start: 20031104, end: 20031104
  3. REMICADE (INFLIXIMAB, RECOMBINANT) LYOPHILIZED POWDER [Suspect]
     Indication: RHEUMATOID ARTHRITIS
     Dosage: , 1 IN 1 AS NECESSARY, INTRAVENOUS DRIP; 159 MG, 1 IN 1 AS NECESSARY INTRAVENOUS DRIP
     Route: 041
     Dates: start: 20031216, end: 20031216
  4. RHEUMATREX (METHOREXATE SODIUM) [Concomitant]

REACTIONS (7)
  - ALANINE AMINOTRANSFERASE INCREASED [None]
  - ASPARTATE AMINOTRANSFERASE INCREASED [None]
  - BLOOD CREATINE PHOSPHOKINASE INCREASED [None]
  - BLOOD LACTATE DEHYDROGENASE INCREASED [None]
  - HEPATIC FUNCTION ABNORMAL [None]
  - POLYMYOSITIS [None]
  - WHITE BLOOD CELL COUNT INCREASED [None]
